FAERS Safety Report 6524261-8 (Version None)
Quarter: 2009Q4

REPORT INFORMATION
  Report Type: 
  Country: None (occurrence: None)
  Receive Date: 20091230
  Receipt Date: 20091230
  Transmission Date: 20100525
  Serious: Yes (Hospitalization)
  Sender: FDA-Public Use
  Company Number: None

PATIENT
  Age: 38 Year
  Sex: Female
  Weight: 85 kg

DRUGS (5)
  1. SAVELLA [Suspect]
     Indication: FIBROMYALGIA
     Dosage: 50MG PO BID
     Route: 048
     Dates: end: 20090901
  2. PERCOCET [Concomitant]
  3. SPIRONOLACTONE [Concomitant]
  4. LEVOTHYROXINE SODIUM [Concomitant]
  5. HYDROCODONE BITARTRATE AND ACETAMINOPHEN [Concomitant]

REACTIONS (3)
  - ACUTE HEPATIC FAILURE [None]
  - PAIN [None]
  - SEPSIS [None]
